FAERS Safety Report 15259657 (Version 2)
Quarter: 2018Q3

REPORT INFORMATION
  Report Type: Spontaneous
  Country: CA (occurrence: CA)
  Receive Date: 20180809
  Receipt Date: 20180814
  Transmission Date: 20181010
  Serious: Yes (Death, Hospitalization)
  Sender: FDA-Public Use
  Company Number: CA-PFIZER INC-2017414942

PATIENT
  Age: 34 Year
  Sex: Female

DRUGS (1)
  1. IBRANCE [Suspect]
     Active Substance: PALBOCICLIB
     Dosage: UNK

REACTIONS (7)
  - Alopecia [Unknown]
  - Neoplasm progression [Unknown]
  - Gait disturbance [Unknown]
  - Balance disorder [Unknown]
  - Seizure [Unknown]
  - Obsessive-compulsive disorder [Unknown]
  - Death [Fatal]

NARRATIVE: CASE EVENT DATE: 20180727
